FAERS Safety Report 18741968 (Version 1)
Quarter: 2021Q1

REPORT INFORMATION
  Report Type: Report from Study
  Country: BR (occurrence: BR)
  Receive Date: 20210114
  Receipt Date: 20210114
  Transmission Date: 20210419
  Serious: Yes (Other)
  Sender: FDA-Public Use
  Company Number: NVSC2021BR005132

PATIENT
  Sex: Female

DRUGS (2)
  1. DIOVAN [Suspect]
     Active Substance: VALSARTAN
     Indication: PRODUCT USED FOR UNKNOWN INDICATION
     Dosage: 160 MG
     Route: 065
  2. DIOVAN [Suspect]
     Active Substance: VALSARTAN
     Dosage: 80 MG, QHS
     Route: 065

REACTIONS (6)
  - Visual impairment [Unknown]
  - Fear [Unknown]
  - Blood pressure increased [Unknown]
  - Cataract [Unknown]
  - Fuchs^ syndrome [Unknown]
  - Pigmentation disorder [Unknown]
